FAERS Safety Report 19929975 (Version 5)
Quarter: 2021Q4

REPORT INFORMATION
  Report Type: Spontaneous
  Country: US (occurrence: US)
  Receive Date: 20211007
  Receipt Date: 20211029
  Transmission Date: 20220303
  Serious: Yes (Other)
  Sender: FDA-Public Use
  Company Number: US-BAXTER-2021BAX031160

PATIENT
  Sex: Female

DRUGS (1)
  1. ARTISS [Suspect]
     Active Substance: FIBRINOGEN HUMAN\THROMBIN HUMAN
     Indication: Neck lift
     Dosage: FROZEN SOLUTION 4 ML
     Route: 065
     Dates: start: 20210809, end: 20210809

REACTIONS (11)
  - Corynebacterium infection [Unknown]
  - Abscess bacterial [Unknown]
  - Swelling [Unknown]
  - Neck mass [Unknown]
  - Swelling face [Unknown]
  - Metabolic disorder [Unknown]
  - Mass [Unknown]
  - Inflammation [Unknown]
  - Skin tightness [Unknown]
  - Condition aggravated [Unknown]
  - Induration [Unknown]

NARRATIVE: CASE EVENT DATE: 20210801
